FAERS Safety Report 5596932-1 (Version None)
Quarter: 2007Q4

REPORT INFORMATION
  Report Type: 
  Country: None (occurrence: None)
  Receive Date: 20071220
  Receipt Date: 20070906
  Transmission Date: 20080405
  Serious: Yes (Other)
  Sender: FDA-Public Use
  Company Number: A03200705475

PATIENT
  Age: 80 Year
  Sex: Male

DRUGS (1)
  1. AMBIEN CR [Suspect]
     Indication: INSOMNIA
     Dosage: 12.5 MG PRN - ORAL
     Route: 048
     Dates: start: 20070801

REACTIONS (2)
  - HALLUCINATION, VISUAL [None]
  - SLEEP TALKING [None]
